FAERS Safety Report 8094341-7 (Version None)
Quarter: 2012Q1

REPORT INFORMATION
  Report Type: 
  Country: None (occurrence: None)
  Receive Date: 20120130
  Receipt Date: 20120123
  Transmission Date: 20120608
  Serious: No
  Sender: FDA-Public Use
  Company Number: US-PFIZER INC-2012019418

PATIENT
  Sex: Male

DRUGS (3)
  1. NEURONTIN [Suspect]
     Indication: PAIN IN EXTREMITY
     Dosage: ONCE A DAY
  2. NEURONTIN [Suspect]
     Indication: ARTHRALGIA
  3. NEURONTIN [Suspect]
     Indication: BURNING SENSATION

REACTIONS (1)
  - DRUG INEFFECTIVE [None]
